FAERS Safety Report 17305901 (Version 1)
Quarter: 2020Q1

REPORT INFORMATION
  Report Type: Spontaneous
  Country: US (occurrence: US)
  Receive Date: 20200106
  Receipt Date: 20200106
  Transmission Date: 20200409
  Serious: Yes (Hospitalization)
  Sender: FDA-Public Use
  Company Number: None

PATIENT
  Age: 83 Year
  Sex: Male
  Weight: 70 kg

DRUGS (2)
  1. AZITHROMYCIN (AZITHROMYCIN 250MG CAP) [Suspect]
     Active Substance: AZITHROMYCIN
     Indication: PNEUMONIA
     Route: 048
     Dates: start: 20101217, end: 20101222
  2. MOXIFLOXACIN (MOXIFLOXACIN HCL 400MG TAB) [Suspect]
     Active Substance: MOXIFLOXACIN
     Indication: PNEUMONIA
     Route: 048
     Dates: start: 20110131, end: 20110206

REACTIONS (3)
  - Pneumonia [None]
  - Clostridium difficile infection [None]
  - Diarrhoea [None]

NARRATIVE: CASE EVENT DATE: 20110307
